FAERS Safety Report 21464657 (Version 2)
Quarter: 2022Q4

REPORT INFORMATION
  Report Type: Spontaneous
  Country: GB (occurrence: GB)
  Receive Date: 20221017
  Receipt Date: 20221108
  Transmission Date: 20230112
  Serious: Yes (Hospitalization)
  Sender: FDA-Public Use
  Company Number: GB-MYLANLABS-2022M1113459

PATIENT
  Age: 64 Year
  Sex: Male

DRUGS (1)
  1. CLOZARIL [Suspect]
     Active Substance: CLOZAPINE
     Indication: Schizophrenia
     Dosage: UNK
     Route: 048
     Dates: start: 20010701

REACTIONS (6)
  - Urinary tract infection [Unknown]
  - Confusional state [Unknown]
  - Hallucination [Unknown]
  - Leukocytosis [Unknown]
  - Neutrophilia [Unknown]
  - COVID-19 [Unknown]

NARRATIVE: CASE EVENT DATE: 20221031
